FAERS Safety Report 14451023 (Version 1)
Quarter: 2018Q1

REPORT INFORMATION
  Report Type: Spontaneous
  Country: US (occurrence: US)
  Receive Date: 20180129
  Receipt Date: 20180129
  Transmission Date: 20180509
  Serious: No
  Sender: FDA-Public Use
  Company Number: US-PFIZER INC-2018033424

PATIENT
  Age: 29 Year
  Sex: Female

DRUGS (1)
  1. GEODON [Suspect]
     Active Substance: ZIPRASIDONE HYDROCHLORIDE\ZIPRASIDONE MESYLATE
     Dosage: 2 DF, 1X/DAY (TWO TABLETS ONCE A DAY AT NIGHT)

REACTIONS (2)
  - Intentional product misuse [Unknown]
  - Somnolence [Unknown]
